FAERS Safety Report 6771370-4 (Version None)
Quarter: 2010Q2

REPORT INFORMATION
  Report Type: 
  Country: None (occurrence: None)
  Receive Date: 20100616
  Receipt Date: 20100607
  Transmission Date: 20101027
  Serious: Yes (Hospitalization)
  Sender: FDA-Public Use
  Company Number: US-SANOFI-AVENTIS-2010SA032842

PATIENT
  Sex: Female

DRUGS (1)
  1. ARAVA [Suspect]
     Indication: RHEUMATOID ARTHRITIS
     Route: 048

REACTIONS (6)
  - GASTROINTESTINAL DISORDER [None]
  - LIVER DISORDER [None]
  - MULTI-ORGAN DISORDER [None]
  - ORAL PAIN [None]
  - PNEUMONIA [None]
  - STEVENS-JOHNSON SYNDROME [None]
